FAERS Safety Report 11196477 (Version 1)
Quarter: 2015Q2

REPORT INFORMATION
  Report Type: Spontaneous
  Country: DE (occurrence: DE)
  Receive Date: 20150617
  Receipt Date: 20150617
  Transmission Date: 20150821
  Serious: Yes (Other)
  Sender: FDA-Public Use
  Company Number: DE-BAXTER-2015BAX031392

PATIENT
  Sex: Female

DRUGS (1)
  1. KIOVIG [Suspect]
     Active Substance: HUMAN IMMUNOGLOBULIN G
     Indication: PRODUCT USED FOR UNKNOWN INDICATION
     Route: 065
     Dates: start: 20150609

REACTIONS (4)
  - Drooling [Unknown]
  - Unresponsive to stimuli [Recovered/Resolved]
  - Eye movement disorder [Unknown]
  - Snoring [Unknown]

NARRATIVE: CASE EVENT DATE: 20150609
